FAERS Safety Report 12983467 (Version 1)
Quarter: 2016Q4

REPORT INFORMATION
  Report Type: Report from Study
  Country: DE (occurrence: DE)
  Receive Date: 20161129
  Receipt Date: 20161129
  Transmission Date: 20170207
  Serious: Yes (Death, Hospitalization, Other)
  Sender: FDA-Public Use
  Company Number: DE-CELGENEUS-DEU-2015096554

PATIENT

DRUGS (3)
  1. DEXAMETHASONE. [Concomitant]
     Active Substance: DEXAMETHASONE
     Indication: PLASMA CELL MYELOMA
     Dosage: 40MG
     Route: 065
  2. DEXAMETHASONE. [Concomitant]
     Active Substance: DEXAMETHASONE
     Dosage: 40MG
     Route: 065
  3. REVLIMID [Suspect]
     Active Substance: LENALIDOMIDE
     Indication: PLASMA CELL MYELOMA
     Dosage: 25MG
     Route: 048

REACTIONS (105)
  - Epistaxis [Fatal]
  - Vomiting [Unknown]
  - Acute kidney injury [Unknown]
  - Leukopenia [Unknown]
  - Haemolysis [Unknown]
  - Hypoglycaemia [Unknown]
  - Oedema peripheral [Unknown]
  - Cataract [Unknown]
  - Cough [Unknown]
  - Pulmonary embolism [Fatal]
  - Nausea [Unknown]
  - Lower gastrointestinal haemorrhage [Unknown]
  - Thrombophlebitis [Unknown]
  - Urinary tract infection [Unknown]
  - Hyperglycaemia [Unknown]
  - Peripheral sensory neuropathy [Unknown]
  - Erythema multiforme [Unknown]
  - Pancytopenia [Unknown]
  - Rhinitis [Unknown]
  - Exfoliative rash [Unknown]
  - Myopathy [Unknown]
  - Headache [Unknown]
  - Dyspnoea [Unknown]
  - Dysphonia [Unknown]
  - Subdural haematoma [Fatal]
  - Diarrhoea [Unknown]
  - Autoimmune haemolytic anaemia [Unknown]
  - Neutrophil count abnormal [Unknown]
  - Eye infection [Unknown]
  - Colitis [Unknown]
  - Fatigue [Unknown]
  - Weight increased [Unknown]
  - Hyperhidrosis [Unknown]
  - Mood altered [Unknown]
  - Bronchial fistula [Unknown]
  - Cushingoid [Unknown]
  - Chronic graft versus host disease [Fatal]
  - Myelodysplastic syndrome [Unknown]
  - Upper respiratory tract infection [Unknown]
  - Rash [Unknown]
  - Abdominal infection [Unknown]
  - Supraventricular tachyarrhythmia [Unknown]
  - Decreased appetite [Unknown]
  - Peripheral motor neuropathy [Unknown]
  - Cardiogenic shock [Fatal]
  - Left ventricular dysfunction [Fatal]
  - Thrombocytopenia [Unknown]
  - Toxic epidermal necrolysis [Unknown]
  - Oral infection [Unknown]
  - Osteonecrosis [Unknown]
  - Dysgeusia [Unknown]
  - Dizziness [Unknown]
  - Dry skin [Unknown]
  - Bone pain [Unknown]
  - Abdominal pain [Unknown]
  - Aphonia [Unknown]
  - Laryngitis [Unknown]
  - Ear infection [Unknown]
  - Visual acuity reduced [Unknown]
  - Flank pain [Unknown]
  - Death [Fatal]
  - Gastrointestinal infection [Unknown]
  - Infection [Unknown]
  - Deep vein thrombosis [Unknown]
  - Bronchitis [Unknown]
  - Gingivitis [Unknown]
  - Syncope [Unknown]
  - Spinal osteoarthritis [Unknown]
  - Hypersensitivity [Unknown]
  - Monoplegia [Unknown]
  - Gastric disorder [Unknown]
  - Mucosal inflammation [Unknown]
  - Agitation [Unknown]
  - Flushing [Unknown]
  - Dysarthria [Unknown]
  - Back pain [Unknown]
  - Sudden death [Fatal]
  - Multiple organ dysfunction syndrome [Fatal]
  - Neutropenic sepsis [Fatal]
  - Pneumonia [Fatal]
  - Disease progression [Fatal]
  - Hypocalcaemia [Unknown]
  - Stevens-Johnson syndrome [Unknown]
  - Sinusitis [Unknown]
  - Horner^s syndrome [Unknown]
  - Insomnia [Unknown]
  - Steroid withdrawal syndrome [Unknown]
  - Pruritus [Unknown]
  - Influenza [Unknown]
  - Dehydration [Unknown]
  - Renal pain [Unknown]
  - Varicose vein [Unknown]
  - General physical health deterioration [Fatal]
  - Large intestinal haemorrhage [Unknown]
  - Anaemia [Unknown]
  - Febrile infection [Unknown]
  - Atrial fibrillation [Unknown]
  - Pyrexia [Unknown]
  - Acne [Unknown]
  - Muscle spasms [Unknown]
  - Myalgia [Unknown]
  - Chest pain [Unknown]
  - Petechiae [Unknown]
  - Tremor [Unknown]
  - Osteomyelitis [Unknown]
